FAERS Safety Report 7756795-2 (Version None)
Quarter: 2011Q3

REPORT INFORMATION
  Report Type: 
  Country: None (occurrence: None)
  Receive Date: 20110916
  Receipt Date: 20110909
  Transmission Date: 20111222
  Serious: Yes (Death)
  Sender: FDA-Public Use
  Company Number: PHHY2011IL81927

PATIENT

DRUGS (1)
  1. WARFARIN SODIUM [Suspect]
     Indication: SUBDURAL HAEMATOMA

REACTIONS (1)
  - DEATH [None]
